FAERS Safety Report 7303324-3 (Version None)
Quarter: 2011Q1

REPORT INFORMATION
  Report Type: 
  Country: None (occurrence: None)
  Receive Date: 20110221
  Receipt Date: 20110215
  Transmission Date: 20110831
  Serious: Yes (Hospitalization)
  Sender: FDA-Public Use
  Company Number: PH-BRISTOL-MYERS SQUIBB COMPANY-15527245

PATIENT
  Age: 71 Year
  Sex: Male

DRUGS (4)
  1. METFORMIN HCL [Suspect]
     Indication: TYPE 2 DIABETES MELLITUS
  2. CRESTOR [Concomitant]
     Indication: DYSLIPIDAEMIA
  3. ONGLYZA [Suspect]
     Indication: TYPE 2 DIABETES MELLITUS
     Dates: start: 20110127, end: 20110205
  4. LYRICA [Concomitant]
     Indication: PAIN

REACTIONS (1)
  - ABDOMINAL DISTENSION [None]
